FAERS Safety Report 18889289 (Version 1)
Quarter: 2021Q1

REPORT INFORMATION
  Report Type: Other
  Country: CN (occurrence: CN)
  Receive Date: 20210212
  Receipt Date: 20210212
  Transmission Date: 20210420
  Serious: Yes (Other)
  Sender: FDA-Public Use
  Company Number: CN-ROCHE-2763893

PATIENT

DRUGS (1)
  1. CAPECITABINE. [Suspect]
     Active Substance: CAPECITABINE
     Indication: RECTAL CANCER
     Route: 048

REACTIONS (14)
  - Adverse drug reaction [Unknown]
  - Urinary tract disorder [Unknown]
  - Anastomotic leak [Unknown]
  - Ileus [Unknown]
  - Radiation skin injury [Unknown]
  - White blood cell count decreased [Unknown]
  - Impaired healing [Unknown]
  - Platelet count decreased [Unknown]
  - Erectile dysfunction [Unknown]
  - Palmar-plantar erythrodysaesthesia syndrome [Unknown]
  - Proctitis [Unknown]
  - Haematotoxicity [Unknown]
  - Female genital tract fistula [Unknown]
  - Urogenital disorder [Unknown]
